FAERS Safety Report 11400644 (Version 14)
Quarter: 2020Q1

REPORT INFORMATION
  Report Type: Report from Study
  Country: US (occurrence: US)
  Receive Date: 20150820
  Receipt Date: 20200220
  Transmission Date: 20200409
  Serious: Yes (Other)
  Sender: FDA-Public Use
  Company Number: PHHY2015US070914

PATIENT
  Age: 33 Year
  Sex: Female

DRUGS (1)
  1. GILENYA [Suspect]
     Active Substance: FINGOLIMOD HYDROCHLORIDE
     Indication: MULTIPLE SCLEROSIS
     Dosage: UNK, QD
     Route: 048

REACTIONS (15)
  - Blood alkaline phosphatase increased [Unknown]
  - Depression [Not Recovered/Not Resolved]
  - Lymphopenia [Not Recovered/Not Resolved]
  - Back pain [Recovered/Resolved]
  - Furuncle [Recovered/Resolved]
  - Acne [Not Recovered/Not Resolved]
  - Urinary tract infection [Recovered/Resolved]
  - Solar lentigo [Recovered/Resolved]
  - Viral labyrinthitis [Recovered/Resolved]
  - Migraine [Recovered/Resolved]
  - Tinea versicolour [Recovered/Resolved]
  - Migraine [Not Recovered/Not Resolved]
  - Aspartate aminotransferase decreased [Unknown]
  - Dizziness [Recovered/Resolved]
  - Viral infection [Recovered/Resolved]

NARRATIVE: CASE EVENT DATE: 20150115
